FAERS Safety Report 4558467-4 (Version None)
Quarter: 2005Q1

REPORT INFORMATION
  Report Type: 
  Country: None (occurrence: None)
  Receive Date: 20050119
  Receipt Date: 20050106
  Transmission Date: 20050727
  Serious: Yes (Hospitalization)
  Sender: FDA-Public Use
  Company Number: RS004922-F

PATIENT
  Age: 1 Day
  Sex: Male
  Weight: 1.91 kg

DRUGS (3)
  1. PARIET                   (RABEPRAZOLE)        (RABEPRAZOLE SODIUM) [Suspect]
     Dosage: INTRA-UTERINE
     Route: 064
     Dates: start: 20030212, end: 20030301
  2. GAVISCON [Concomitant]
  3. CLOMID             (CLOMIFENE CITRATE) [Concomitant]

REACTIONS (3)
  - DRUG EXPOSURE DURING PREGNANCY [None]
  - JAUNDICE NEONATAL [None]
  - PREMATURE BABY [None]
